FAERS Safety Report 13631675 (Version 1)
Quarter: 2017Q2

REPORT INFORMATION
  Report Type: Spontaneous
  Country: US (occurrence: US)
  Receive Date: 20170531
  Receipt Date: 20170531
  Transmission Date: 20170830
  Serious: No
  Sender: FDA-Public Use
  Company Number: US-ASTELLAS-1402553

PATIENT
  Sex: Female

DRUGS (10)
  1. PRAVASTATIN. [Concomitant]
     Active Substance: PRAVASTATIN
  2. CARBOPLATIN. [Concomitant]
     Active Substance: CARBOPLATIN
  3. JANUMET [Concomitant]
     Active Substance: METFORMIN HYDROCHLORIDE\SITAGLIPTIN PHOSPHATE
  4. LISINOPRIL. [Concomitant]
     Active Substance: LISINOPRIL
  5. INSULIN [Concomitant]
     Active Substance: INSULIN NOS
  6. BENADRYL [Concomitant]
     Active Substance: DIPHENHYDRAMINE HYDROCHLORIDE
  7. ASPIRIN. [Concomitant]
     Active Substance: ASPIRIN
  8. TARCEVA [Suspect]
     Active Substance: ERLOTINIB HYDROCHLORIDE
     Indication: PRODUCT USED FOR UNKNOWN INDICATION
     Dosage: DOSE WAS REDUCED TO HALF OF 150 MG.
     Route: 048
     Dates: start: 20121129
  9. AMBIEN [Concomitant]
     Active Substance: ZOLPIDEM TARTRATE
  10. JANUVIA [Concomitant]
     Active Substance: SITAGLIPTIN PHOSPHATE

REACTIONS (3)
  - Erythema [Unknown]
  - Skin disorder [Unknown]
  - Mole excision [Recovered/Resolved]
